FAERS Safety Report 4890666-4 (Version None)
Quarter: 2006Q1

REPORT INFORMATION
  Report Type: 
  Country: None (occurrence: None)
  Receive Date: 20060123
  Receipt Date: 20060112
  Transmission Date: 20060701
  Serious: Yes (Other)
  Sender: FDA-Public Use
  Company Number: 2006007181

PATIENT
  Age: 16 Year
  Sex: Male

DRUGS (2)
  1. DRAMAMINE [Suspect]
     Indication: INTENTIONAL OVERDOSE
     Dosage: 32 TABLETS ONCE,  ORAL
     Route: 048
     Dates: start: 20060112, end: 20060112
  2. OTHER ANTI-ASTHMATICS,  INHALANTS (OTHER ANTI-ASTHMATICS, INHALANTS) [Concomitant]

REACTIONS (3)
  - HALLUCINATION [None]
  - INTENTIONAL OVERDOSE [None]
  - REFUSAL OF TREATMENT BY PATIENT [None]
